FAERS Safety Report 9816073 (Version 2)
Quarter: 2014Q1

REPORT INFORMATION
  Report Type: Spontaneous
  Country: DE (occurrence: DE)
  Receive Date: 20140114
  Receipt Date: 20140319
  Transmission Date: 20141002
  Serious: Yes (Other)
  Sender: FDA-Public Use
  Company Number: PHHY2014DE003001

PATIENT
  Age: 60 Year
  Sex: Female

DRUGS (1)
  1. MERIMONO [Suspect]
     Dosage: 2 MG, DAILY
     Route: 048
     Dates: start: 2001, end: 201311

REACTIONS (2)
  - Cerebrovascular accident [Not Recovered/Not Resolved]
  - Headache [Not Recovered/Not Resolved]
